FAERS Safety Report 19734743 (Version 2)
Quarter: 2021Q3

REPORT INFORMATION
  Report Type: Report from Study
  Country: KR (occurrence: KR)
  Receive Date: 20210824
  Receipt Date: 20210910
  Transmission Date: 20211014
  Serious: Yes (Death, Hospitalization)
  Sender: FDA-Public Use
  Company Number: KR-CELLTRION INC.-2021KR011480

PATIENT

DRUGS (51)
  1. TRANSAMIN [Concomitant]
     Active Substance: TRANEXAMIC ACID
     Indication: HAEMOSTASIS
     Dosage: 1000 MG, QD
     Route: 042
     Dates: start: 20210710, end: 20210710
  2. LEVOD [Concomitant]
     Indication: DYSPEPSIA
  3. PENIRAMIN [Concomitant]
     Indication: PREMEDICATION
     Dosage: 4 ML, ONCE
     Route: 042
     Dates: start: 20210708, end: 20210708
  4. AUS INFUSION [Concomitant]
     Indication: PROPHYLAXIS
     Dosage: 80 ML, ONCE
     Route: 042
     Dates: start: 20210713, end: 20210713
  5. VITAMIN K1 [Concomitant]
     Active Substance: PHYTONADIONE
     Indication: PROPHYLAXIS
     Dosage: 20 MG, ONCE
     Route: 042
     Dates: start: 20210714, end: 20210716
  6. MVI [ASCORBIC ACID;DEXPANTHENOL;ERGOCALCIFEROL;NICOTINAMIDE;PYRIDOXINE [Concomitant]
     Indication: PROPHYLAXIS
     Dosage: 5 ML, QD
     Route: 042
     Dates: start: 20210713, end: 20210715
  7. LETROZOLE. [Suspect]
     Active Substance: LETROZOLE
     Dosage: 2.5 MG, ONCE A DAY
     Route: 048
     Dates: start: 20210712
  8. SUPRAX [Concomitant]
     Active Substance: CEFIXIME
     Indication: INFECTION PROPHYLAXIS
     Dosage: 100 MG, BID
     Route: 048
     Dates: start: 20210618, end: 20210625
  9. BUP?4 [Concomitant]
     Active Substance: PROPIVERINE
     Indication: URINARY INCONTINENCE
  10. SETOPEN ER [Concomitant]
     Indication: TUMOUR PAIN
     Dosage: 650 MG, TID
     Route: 048
     Dates: start: 20210621, end: 20210709
  11. LATOGAR [Concomitant]
     Indication: PROPHYLAXIS
     Dosage: 10 MG, BID
     Route: 048
     Dates: start: 20210702, end: 20210709
  12. ACETAMINOPHEN. [Concomitant]
     Active Substance: ACETAMINOPHEN
     Indication: PREMEDICATION
     Dosage: 300 MG, ONCE
     Route: 048
     Dates: start: 20210708, end: 20210708
  13. ALBUMIN [Concomitant]
     Active Substance: ALBUMIN HUMAN
     Indication: HYPOALBUMINAEMIA
     Dosage: 100 ML, ONCE
     Route: 042
     Dates: start: 20210710, end: 20210710
  14. SODIUM BICARBONATE. [Concomitant]
     Active Substance: SODIUM BICARBONATE
     Indication: PROPHYLAXIS
     Dosage: 80 MEQ, ONCE
     Route: 042
     Dates: start: 20210715, end: 20210715
  15. LETROZOLE. [Suspect]
     Active Substance: LETROZOLE
     Indication: BREAST CANCER
     Dosage: 2.5 MG
     Route: 048
     Dates: start: 20210708, end: 20210709
  16. TAMIDOL SEMI [Concomitant]
     Indication: BACK PAIN
     Dosage: 1 DOSAGE FORM (TABLET), QD
     Route: 048
     Dates: start: 2020, end: 20210709
  17. ONSETRON [Concomitant]
     Active Substance: ONDANSETRON
     Indication: NAUSEA
     Dosage: 8 MG, ONCE
     Route: 042
     Dates: start: 20210710, end: 20210710
  18. MORPHINE SULFATE. [Concomitant]
     Active Substance: MORPHINE SULFATE
     Dosage: 3 MG, PRN
     Route: 042
     Dates: start: 20210714, end: 20210715
  19. TABAXIN [Concomitant]
     Active Substance: PIPERACILLIN SODIUM\TAZOBACTAM SODIUM
     Indication: INFECTION PROPHYLAXIS
     Dosage: 4.5 G, TID
     Route: 042
     Dates: start: 20210712, end: 20210714
  20. ONSETRON [Concomitant]
     Active Substance: ONDANSETRON
     Indication: VOMITING
  21. MACPERAN [Concomitant]
     Active Substance: METOCLOPRAMIDE HYDROCHLORIDE
     Indication: NAUSEA
     Dosage: 10 MG, ONCE
     Route: 042
     Dates: start: 20210710, end: 20210710
  22. LASIX [Concomitant]
     Active Substance: FUROSEMIDE
     Indication: URINE OUTPUT DECREASED
     Dosage: 20 MG, PRN
     Route: 042
     Dates: start: 20210714, end: 20210715
  23. OLMETEC [Concomitant]
     Active Substance: OLMESARTAN MEDOXOMIL
     Indication: HYPERTENSION
     Dosage: 10 MG, QD
     Route: 048
     Dates: start: 2018, end: 20210709
  24. UNI INFUSION [Concomitant]
     Indication: PROPHYLAXIS
     Dosage: 40 ML, ONCE
     Route: 042
     Dates: start: 20210712, end: 20210712
  25. AUS INFUSION [Concomitant]
     Indication: HEPATOTOXICITY
  26. NESP [Concomitant]
     Active Substance: DARBEPOETIN ALFA
     Indication: ANAEMIA PROPHYLAXIS
     Dosage: 120 MCG, ONCE
     Route: 058
     Dates: start: 20210714, end: 20210714
  27. SODIUM BICARBONATE. [Concomitant]
     Active Substance: SODIUM BICARBONATE
     Indication: ACIDOSIS
  28. HERZUMA [Suspect]
     Active Substance: TRASTUZUMAB-PKRB
     Indication: BREAST CANCER
     Dosage: 456.8 MG
     Route: 042
     Dates: start: 20210708, end: 20210709
  29. CELEX [CELECOXIB] [Concomitant]
     Active Substance: CELECOXIB
     Indication: SPINAL STENOSIS
     Dosage: 1 DOSAGE FORM (CAPSULE), QD
     Route: 048
     Dates: start: 2015, end: 20210709
  30. ESOMEKHAN [Concomitant]
     Indication: PROPHYLAXIS
     Dosage: 20 MG, BID
     Route: 048
     Dates: start: 2020, end: 20210709
  31. MOSADIN [Concomitant]
     Indication: DYSPEPSIA
  32. BUP?4 [Concomitant]
     Active Substance: PROPIVERINE
     Indication: PROPHYLAXIS
     Dosage: 20 MG, QD
     Route: 048
     Dates: start: 20210621, end: 20210709
  33. LEVOD [Concomitant]
     Indication: PROPHYLAXIS
     Dosage: 25 MG, TID
     Route: 048
     Dates: start: 20210621, end: 20210709
  34. DICAMAX [Concomitant]
     Indication: PROPHYLAXIS
     Dosage: 1 DOSAGE FORM (TABLET), QD
     Route: 048
     Dates: start: 20210708, end: 20210709
  35. DICKNOL [Concomitant]
     Active Substance: DICLOFENAC DEANOL
     Indication: TUMOUR PAIN
     Dosage: 5 MG, ONCE
     Route: 030
     Dates: start: 20210710, end: 20210710
  36. LASIX [Concomitant]
     Active Substance: FUROSEMIDE
     Dosage: 500 MG, ONCE
     Route: 042
     Dates: start: 20210715, end: 20210716
  37. NOREPIRIN [Concomitant]
     Indication: VASOCONSTRICTION
     Dosage: 16 MG, QD
     Route: 042
     Dates: start: 20210710, end: 20210710
  38. BONIVA [Concomitant]
     Active Substance: IBANDRONATE SODIUM
     Indication: OSTEOPOROSIS
     Dosage: 150 MG, QD
     Route: 048
     Dates: start: 2011, end: 20210709
  39. ACECLOFENAC [Concomitant]
     Active Substance: ACECLOFENAC
     Indication: TUMOUR PAIN
     Dosage: 100 MG, BID
     Route: 048
     Dates: start: 20210702, end: 20210713
  40. MORPHINE SULFATE. [Concomitant]
     Active Substance: MORPHINE SULFATE
     Indication: TUMOUR PAIN
     Dosage: 5 MG, ONCE
     Route: 042
     Dates: start: 20210710, end: 20210710
  41. ALBUMIN [Concomitant]
     Active Substance: ALBUMIN HUMAN
     Dosage: 100 ML, ONCE
     Route: 042
     Dates: start: 20210715, end: 20210716
  42. TABAXIN [Concomitant]
     Active Substance: PIPERACILLIN SODIUM\TAZOBACTAM SODIUM
     Indication: INFECTION PROPHYLAXIS
     Dosage: 2.25 G, TID
     Route: 042
     Dates: start: 20210714, end: 20210715
  43. LASIX [Concomitant]
     Active Substance: FUROSEMIDE
     Dosage: 40 MG, ONCE
     Route: 042
     Dates: start: 20210714, end: 20210714
  44. RIBOCICLIB. [Suspect]
     Active Substance: RIBOCICLIB
     Indication: BREAST CANCER
     Dosage: 600 MG
     Route: 048
     Dates: start: 20210708, end: 20210709
  45. ESOMEKHAN [Concomitant]
     Indication: DYSPEPSIA
  46. MOSADIN [Concomitant]
     Indication: PROPHYLAXIS
     Dosage: 5 MG, BID
     Route: 048
     Dates: start: 2020, end: 20210709
  47. LATOGAR [Concomitant]
     Indication: DYSPEPSIA
     Dosage: 10 MG, BID
     Route: 048
     Dates: start: 20210712, end: 20210713
  48. MACPERAN [Concomitant]
     Active Substance: METOCLOPRAMIDE HYDROCHLORIDE
     Indication: VOMITING
  49. UNI INFUSION [Concomitant]
     Indication: HEPATOTOXICITY
     Dosage: 80 ML, ONCE
     Route: 042
     Dates: start: 20210714, end: 20210714
  50. EGAFUSIN [Concomitant]
     Indication: PROPHYLAXIS
     Dosage: 500 ML, ONCE
     Route: 042
     Dates: start: 20210712, end: 20210712
  51. PHOSTEN [Concomitant]
     Indication: HYPOPHOSPHATAEMIA
     Dosage: 20 ML, ONCE
     Route: 042
     Dates: start: 20210712, end: 20210712

REACTIONS (4)
  - Alanine aminotransferase increased [Not Recovered/Not Resolved]
  - Aortic aneurysm rupture [Fatal]
  - Anuria [Not Recovered/Not Resolved]
  - Aspartate aminotransferase increased [Not Recovered/Not Resolved]

NARRATIVE: CASE EVENT DATE: 20210710
